FAERS Safety Report 11683885 (Version 1)
Quarter: 2015Q4

REPORT INFORMATION
  Report Type: Spontaneous
  Country: US (occurrence: US)
  Receive Date: 20151029
  Receipt Date: 20151029
  Transmission Date: 20160304
  Serious: No
  Sender: FDA-Public Use
  Company Number: US-TARO-2015TAR00487

PATIENT
  Age: 45 Year
  Sex: Male

DRUGS (1)
  1. TRIAMCINOLONE ACETONIDE DENTAL PASTE USP 0.1% [Suspect]
     Active Substance: TRIAMCINOLONE ACETONIDE
     Indication: SALIVARY GLAND MUCOCOELE
     Dosage: UNK UNK, 3X/DAY
     Route: 061
     Dates: start: 201505, end: 201505

REACTIONS (1)
  - Oral pain [Recovering/Resolving]

NARRATIVE: CASE EVENT DATE: 201505
